FAERS Safety Report 7402349-7 (Version None)
Quarter: 2011Q1

REPORT INFORMATION
  Report Type: 
  Country: None (occurrence: None)
  Receive Date: 20110331
  Receipt Date: 20110328
  Transmission Date: 20110831
  Serious: Yes (Hospitalization, Other)
  Sender: FDA-Public Use
  Company Number: AXC-2010-000356

PATIENT
  Age: 48 Year
  Sex: Male

DRUGS (2)
  1. METHYLPREDNISOLONE [Suspect]
     Indication: COLITIS ULCERATIVE
  2. MESALAMINE [Suspect]
     Indication: COLITIS ULCERATIVE
     Dosage: 3000 MG, QD,

REACTIONS (3)
  - PERIPHERAL SENSORIMOTOR NEUROPATHY [None]
  - COLITIS ULCERATIVE [None]
  - CONDITION AGGRAVATED [None]
